FAERS Safety Report 7911905-9 (Version None)
Quarter: 2011Q4

REPORT INFORMATION
  Report Type: 
  Country: None (occurrence: None)
  Receive Date: 20111114
  Receipt Date: 20111006
  Transmission Date: 20120403
  Serious: Yes (Hospitalization)
  Sender: FDA-Public Use
  Company Number: IE-ROCHE-712115

PATIENT
  Sex: Female
  Weight: 55 kg

DRUGS (15)
  1. CARBOPLATIN [Suspect]
     Indication: BREAST CANCER
     Dosage: LAST DOSE PRIOR TO SAE: 22 JUNE 2010, DOSE: AUC = 6 MG/ML/MIN IV OVER 30-60 MINUTES. FORM: VIALS
     Route: 042
     Dates: start: 20100622, end: 20100629
  2. PROCHLORPERAZINE [Concomitant]
     Dosage: FREQUENCY: PRN
  3. NEUROGEN [Concomitant]
     Dates: start: 20100701, end: 20100704
  4. DEXAMETHASONE [Suspect]
     Indication: PREMEDICATION
     Dosage: GIVEN BID, DAYS 1+2 OF 21 DAY CYCLE.
     Route: 048
  5. INNOHEP [Concomitant]
     Dates: start: 20100628, end: 20100708
  6. TRAMADOL HCL [Concomitant]
     Dates: start: 20100702, end: 20100707
  7. ORAMORPH SR [Concomitant]
     Dates: start: 20100627, end: 20100628
  8. ORAMORPH SR [Concomitant]
     Dates: start: 20100628, end: 20100628
  9. AVASTIN [Suspect]
     Indication: BREAST CANCER
     Dosage: LAST DOSE PRIOR TO SAE: 22 JUNE 2010. DOSE AND FREQUENCY ACCORDING TO PROTOCOL.FORM: VIALS
     Route: 042
     Dates: start: 20100622, end: 20100629
  10. HERCEPTIN [Suspect]
     Indication: BREAST CANCER
     Dosage: LOADING DOSE ACCORDING TO PROTOCOL, PATIENT WILL BE RECEIVING 6 MG/KG Q3W 3 WKS AFTER INITIAL DOSE.
     Route: 042
     Dates: start: 20100622, end: 20100629
  11. ACETAMINOPHEN [Concomitant]
     Dosage: FREQUENCY: PRN
  12. PROCHLORPERAZINE [Concomitant]
     Dates: start: 20100704, end: 20100708
  13. ACETAMINOPHEN [Concomitant]
     Dates: start: 20100708, end: 20100709
  14. SLOW-K [Concomitant]
     Dates: start: 20100705, end: 20100708
  15. DOCETAXEL [Suspect]
     Indication: BREAST CANCER
     Dosage: LAST DOSE PRIOR TO SAE: 22 JUNE 2010. DOSE AND FREQUENCY ACCORDING TO PROTOCOL.FORM: VIALS
     Route: 042
     Dates: start: 20100622, end: 20100629

REACTIONS (2)
  - WOUND INFECTION [None]
  - DUODENAL ULCER PERFORATION [None]
